FAERS Safety Report 18299479 (Version 1)
Quarter: 2020Q3

REPORT INFORMATION
  Report Type: Spontaneous
  Country: US (occurrence: US)
  Receive Date: 20200922
  Receipt Date: 20200922
  Transmission Date: 20201103
  Serious: No
  Sender: FDA-Public Use
  Company Number: None

PATIENT

DRUGS (12)
  1. FUROSEMIDE. [Concomitant]
     Active Substance: FUROSEMIDE
  2. ASSURED INSTANT HAND SANITIZER [Suspect]
     Active Substance: ALCOHOL
     Indication: COVID-19 PROPHYLAXIS
     Route: 061
  3. AMLODIPINE [Concomitant]
     Active Substance: AMLODIPINE BESYLATE
  4. LOSARTAN. [Concomitant]
     Active Substance: LOSARTAN
  5. CLARITIN [Concomitant]
     Active Substance: LORATADINE
  6. PROBIOTICS [Concomitant]
     Active Substance: PROBIOTICS NOS
  7. ASPIRIN. [Concomitant]
     Active Substance: ASPIRIN
  8. CRESTOR [Concomitant]
     Active Substance: ROSUVASTATIN CALCIUM
  9. ISOSORBIDE. [Concomitant]
     Active Substance: ISOSORBIDE
  10. PREVACID [Concomitant]
     Active Substance: LANSOPRAZOLE
  11. VITAMINS [Concomitant]
     Active Substance: VITAMINS
  12. PEPCID [Concomitant]
     Active Substance: FAMOTIDINE

REACTIONS (3)
  - Head discomfort [None]
  - Visual impairment [None]
  - Feeling hot [None]

NARRATIVE: CASE EVENT DATE: 20200915
